FAERS Safety Report 5835142-7 (Version None)
Quarter: 2008Q3

REPORT INFORMATION
  Report Type: 
  Country: None (occurrence: None)
  Receive Date: 20080805
  Receipt Date: 20080805
  Transmission Date: 20090109
  Serious: No
  Sender: FDA-Public Use
  Company Number: None

PATIENT
  Sex: Female
  Weight: 96.6162 kg

DRUGS (1)
  1. COZAAR [Suspect]
     Indication: HYPERTENSION
     Dosage: COZAAR 1 EVERY DAY PO
     Route: 048
     Dates: start: 20080602, end: 20080729

REACTIONS (2)
  - BLOOD PRESSURE INCREASED [None]
  - GASTRIC DISORDER [None]
